FAERS Safety Report 4798169-2 (Version None)
Quarter: 2005Q4

REPORT INFORMATION
  Report Type: 
  Country: None (occurrence: None)
  Receive Date: 20051011
  Receipt Date: 20051011
  Transmission Date: 20060501
  Serious: Yes (Hospitalization)
  Sender: FDA-Public Use
  Company Number: None

PATIENT
  Age: 46 Year
  Sex: Female
  Weight: 53.978 kg

DRUGS (4)
  1. SUMATRIPTAN 6MG SUBCUTANEOUS [Suspect]
     Indication: MIGRAINE
     Dosage: 6 MG SUBCUTANEOUS X1
     Route: 058
     Dates: start: 20050617
  2. MIRTAZAPINE [Concomitant]
  3. SEROQUEL [Concomitant]
  4. PENICILLIN [Concomitant]

REACTIONS (5)
  - CHEST PAIN [None]
  - HYPERHIDROSIS [None]
  - PALLOR [None]
  - SENSATION OF HEAVINESS [None]
  - VASOSPASM [None]
